FAERS Safety Report 7705320-0 (Version None)
Quarter: 2011Q3

REPORT INFORMATION
  Report Type: 
  Country: None (occurrence: None)
  Receive Date: 20110818
  Receipt Date: 20110802
  Transmission Date: 20111222
  Serious: Yes (Hospitalization)
  Sender: FDA-Public Use
  Company Number: 2011MA010855

PATIENT
  Age: 49 Year
  Sex: Female

DRUGS (6)
  1. RIFAMPIN [Suspect]
     Indication: PULMONARY TUBERCULOSIS
     Dosage: 450 MG;
  2. PYRAZINAMIDE [Suspect]
     Indication: PULMONARY TUBERCULOSIS
     Dosage: 1000 MG;
  3. ETHAMBUTOL HYDROCHLORIDE [Suspect]
     Indication: PULMONARY TUBERCULOSIS
     Dosage: 750 MG
  4. ISONIAZID [Suspect]
     Indication: PULMONARY TUBERCULOSIS
     Dosage: 300 MG;
  5. PYRIDOXAL PHOSPHATE HYDRATE (NO PREF. NAME) [Suspect]
     Indication: PULMONARY TUBERCULOSIS
  6. REBAMIPIDE (REBAMIPIDE) [Suspect]
     Indication: PULMONARY TUBERCULOSIS

REACTIONS (8)
  - NEUTROPENIA [None]
  - GINGIVAL BLEEDING [None]
  - BONE MARROW FAILURE [None]
  - THROMBOCYTOPENIA [None]
  - LYMPHOCYTE STIMULATION TEST POSITIVE [None]
  - PURPURA [None]
  - EPISTAXIS [None]
  - WHITE BLOOD CELL COUNT DECREASED [None]
